FAERS Safety Report 9714007 (Version 1)
Quarter: 2013Q4

REPORT INFORMATION
  Report Type: Spontaneous
  Country: US (occurrence: US)
  Receive Date: 20131126
  Receipt Date: 20131126
  Transmission Date: 20140711
  Serious: No
  Sender: FDA-Public Use
  Company Number: US-GILEAD-2008-0018558

PATIENT
  Sex: Male
  Weight: 53.52 kg

DRUGS (9)
  1. LETAIRIS [Suspect]
     Indication: PULMONARY ARTERIAL HYPERTENSION
     Route: 048
     Dates: start: 20080926
  2. PRILOSEC [Concomitant]
  3. LOPRESSOR [Concomitant]
  4. PAXIL [Concomitant]
  5. LANOXIN [Concomitant]
  6. OXYCODONE [Concomitant]
  7. ASPIRIN [Concomitant]
  8. METHADONE [Concomitant]
  9. MULTIVITAMIN [Concomitant]

REACTIONS (1)
  - Oedema peripheral [None]
